FAERS Safety Report 18237326 (Version 1)
Quarter: 2020Q3

REPORT INFORMATION
  Report Type: Spontaneous
  Country: CA (occurrence: CA)
  Receive Date: 20200907
  Receipt Date: 20200907
  Transmission Date: 20201103
  Serious: Yes (Hospitalization, Other)
  Sender: FDA-Public Use
  Company Number: CA-ABBVIE-20K-028-3551841-00

PATIENT
  Age: 54 Year
  Sex: Female
  Weight: 44.95 kg

DRUGS (15)
  1. INFLIXIMAB [Concomitant]
     Active Substance: INFLIXIMAB
     Indication: CROHN^S DISEASE
     Dosage: 3 MG/KG, 0, 2, 6, THEN EVERY 8 WEEKS
     Route: 042
     Dates: start: 20190508
  2. INFLIXIMAB [Concomitant]
     Active Substance: INFLIXIMAB
     Indication: ANKYLOSING SPONDYLITIS
     Route: 042
     Dates: start: 20190423, end: 20191115
  3. PREDNISONE. [Concomitant]
     Active Substance: PREDNISONE
     Indication: PRODUCT USED FOR UNKNOWN INDICATION
     Dates: start: 201810
  4. CIMZIA [Concomitant]
     Active Substance: CERTOLIZUMAB PEGOL
     Indication: PRODUCT USED FOR UNKNOWN INDICATION
  5. INFLIXIMAB [Concomitant]
     Active Substance: INFLIXIMAB
     Dosage: 3 MG/KG, 0, 2, 6, THEN EVERY 8 WEEKS
     Route: 042
     Dates: start: 20190730
  6. INFLIXIMAB [Concomitant]
     Active Substance: INFLIXIMAB
     Route: 042
     Dates: start: 20200226
  7. CERTOLIZUMAB PEGOL [Concomitant]
     Active Substance: CERTOLIZUMAB PEGOL
     Indication: PRODUCT USED FOR UNKNOWN INDICATION
     Dates: start: 2017, end: 20190404
  8. HUMIRA [Suspect]
     Active Substance: ADALIMUMAB
     Indication: PRODUCT USED FOR UNKNOWN INDICATION
     Route: 058
  9. INFLIXIMAB [Concomitant]
     Active Substance: INFLIXIMAB
     Dosage: 3 MG/KG, 0, 2, 6, THEN EVERY 8 WEEKS
     Route: 042
     Dates: start: 20190604
  10. INFLIXIMAB [Concomitant]
     Active Substance: INFLIXIMAB
     Route: 042
     Dates: start: 20200113
  11. INFLIXIMAB [Concomitant]
     Active Substance: INFLIXIMAB
     Route: 042
     Dates: start: 20200408
  12. INFLIXIMAB [Concomitant]
     Active Substance: INFLIXIMAB
     Route: 042
     Dates: start: 20200703
  13. INFLIXIMAB [Concomitant]
     Active Substance: INFLIXIMAB
     Route: 042
     Dates: start: 20191115, end: 20191115
  14. INFLIXIMAB [Concomitant]
     Active Substance: INFLIXIMAB
     Dosage: 250 MG, (3 MG/KG)
     Route: 042
  15. INFLIXIMAB [Concomitant]
     Active Substance: INFLIXIMAB
     Route: 042
     Dates: start: 20200818

REACTIONS (39)
  - Ligament sprain [Unknown]
  - Helicobacter gastritis [Unknown]
  - Musculoskeletal stiffness [Unknown]
  - Weight decreased [Unknown]
  - Gastrooesophageal reflux disease [Unknown]
  - Arthralgia [Unknown]
  - Ear injury [Unknown]
  - Drug level below therapeutic [Unknown]
  - Malaise [Not Recovered/Not Resolved]
  - Dyspepsia [Recovering/Resolving]
  - Oedema peripheral [Recovered/Resolved]
  - Influenza [Recovered/Resolved]
  - General physical condition abnormal [Recovered/Resolved]
  - Abdominal mass [Unknown]
  - Discomfort [Unknown]
  - Back pain [Unknown]
  - Abdominal pain upper [Unknown]
  - Condition aggravated [Unknown]
  - Dizziness [Unknown]
  - Visual impairment [Recovered/Resolved]
  - Helicobacter infection [Not Recovered/Not Resolved]
  - Nausea [Unknown]
  - Haemophilus infection [Not Recovered/Not Resolved]
  - Periarthritis [Unknown]
  - Fatigue [Not Recovered/Not Resolved]
  - Erythema nodosum [Unknown]
  - Spinal cord oedema [Unknown]
  - Influenza [Unknown]
  - Antibody test abnormal [Unknown]
  - Fall [Unknown]
  - Otorrhoea [Unknown]
  - Vomiting [Not Recovered/Not Resolved]
  - Infection [Unknown]
  - Product use issue [Unknown]
  - Off label use [Unknown]
  - Arthropathy [Unknown]
  - Bacterial infection [Unknown]
  - Diarrhoea [Not Recovered/Not Resolved]
  - Neck pain [Unknown]

NARRATIVE: CASE EVENT DATE: 20190422
